FAERS Safety Report 24857153 (Version 1)
Quarter: 2025Q1

REPORT INFORMATION
  Report Type: Report from Study
  Country: DE (occurrence: DE)
  Receive Date: 20250117
  Receipt Date: 20250117
  Transmission Date: 20250409
  Serious: Yes (Death, Life-Threatening, Hospitalization)
  Sender: PFIZER
  Company Number: DE-002147023-GXKR2008DE00656

PATIENT
  Age: 65 Year
  Sex: Male

DRUGS (24)
  1. AMPICILLIN SODIUM\SULBACTAM SODIUM [Suspect]
     Active Substance: AMPICILLIN SODIUM\SULBACTAM SODIUM
     Indication: Pneumonia
     Dosage: DAILY DOSE: 3 DF DOSAGE FORM EVERY DAY, 1-1-1
     Dates: start: 20040113, end: 20040123
  2. ACETYLCYSTEINE [Suspect]
     Active Substance: ACETYLCYSTEINE
     Indication: Productive cough
     Dosage: ACC HEXAL (DAILY DOSE: 3 DF DOSAGE FORM EVERY DAY, 1-1-1
     Dates: start: 20040110
  3. CERTOPARIN SODIUM [Suspect]
     Active Substance: CERTOPARIN SODIUM
     Indication: Thrombosis prophylaxis
     Route: 058
     Dates: start: 20040102, end: 20040124
  4. DEXAMETHASONE ACETATE [Suspect]
     Active Substance: DEXAMETHASONE ACETATE
     Indication: Glioblastoma
     Dosage: DAILY DOSE: 3 DF DOSAGE FORM EVERY DAY, 1-1-1
     Dates: start: 20031230
  5. DEXAMETHASONE ACETATE [Suspect]
     Active Substance: DEXAMETHASONE ACETATE
     Dosage: DAILY DOSE: 0.5 DF DOSAGE FORM EVERY DAY, 0.5-0-0
     Dates: start: 20040119
  6. SULTANOL [Suspect]
     Active Substance: ALBUTEROL SULFATE
     Indication: Bronchitis
     Dosage: DAILY DOSE: 3 DF DOSAGE FORM EVERY DAY, 1-1-1
     Dates: start: 20040113, end: 20040125
  7. PHENYTOIN [Suspect]
     Active Substance: PHENYTOIN
     Indication: Glioblastoma
     Dosage: DAILY DOSE: 3 DF DOSAGE FORM EVERY DAY, 1-1-1
     Dates: start: 20031230, end: 20040101
  8. PHENYTOIN [Suspect]
     Active Substance: PHENYTOIN
     Indication: Glioblastoma
     Dosage: DAILY DOSE: 3 DF DOSAGE FORM EVERY DAY, 1-1-1
     Dates: start: 20040102
  9. PHENYTOIN [Suspect]
     Active Substance: PHENYTOIN
     Dosage: 1-2-2 DF/DAY
  10. PHENYTOIN [Suspect]
     Active Substance: PHENYTOIN
     Dosage: 1-2-1 DF/DAY
  11. IBUPROFEN [Concomitant]
     Active Substance: IBUPROFEN
     Indication: Pain
     Route: 048
  12. XYLOMETAZOLINE HYDROCHLORIDE [Concomitant]
     Active Substance: XYLOMETAZOLINE HYDROCHLORIDE
     Route: 045
     Dates: start: 20040113, end: 20040113
  13. NOVALGIN (METAMIZOLE SODIUM) [Concomitant]
     Active Substance: METAMIZOLE SODIUM
     Indication: Pain
     Route: 048
  14. SODIUM PICOSULFATE [Concomitant]
     Active Substance: SODIUM PICOSULFATE
     Indication: Constipation
  15. DULCOLAX (BISACODYL) [Concomitant]
     Active Substance: BISACODYL
     Indication: Constipation
  16. THOMAEJONIN [Concomitant]
     Indication: Parenteral nutrition
     Route: 042
  17. MOXIFLOXACIN HYDROCHLORIDE [Concomitant]
     Active Substance: MOXIFLOXACIN HYDROCHLORIDE
     Indication: Pneumonia
     Route: 048
  18. ACETAMINOPHEN [Concomitant]
     Active Substance: ACETAMINOPHEN
     Indication: Pain
  19. CLEMASTINE [Concomitant]
     Active Substance: CLEMASTINE
     Indication: Erythema
     Route: 042
     Dates: start: 20040124
  20. PREDNISOLONE SODIUM SUCCINATE [Concomitant]
     Active Substance: PREDNISOLONE SODIUM SUCCINATE
     Indication: Erythema
     Dates: start: 20040124
  21. CALCIUM [Concomitant]
     Active Substance: CALCIUM
     Dates: start: 20040125, end: 20040125
  22. CARBAMAZEPINE [Concomitant]
     Active Substance: CARBAMAZEPINE
     Indication: Alcohol withdrawal syndrome
     Dates: start: 20040126
  23. DIFLUCAN [Concomitant]
     Active Substance: FLUCONAZOLE
     Indication: Candida infection
     Route: 042
     Dates: start: 20040126
  24. METHIONINE [Concomitant]
     Active Substance: METHIONINE
     Route: 048
     Dates: start: 20040126

REACTIONS (20)
  - Glioblastoma [Fatal]
  - Condition aggravated [Fatal]
  - Stevens-Johnson syndrome [Unknown]
  - Toxic epidermal necrolysis [Unknown]
  - Blister [Unknown]
  - Conjunctivitis [Unknown]
  - Pyrexia [Unknown]
  - Nikolsky^s sign positive [Unknown]
  - Pruritus [Unknown]
  - Erythema [Unknown]
  - Rash [Unknown]
  - Mucosal erosion [Unknown]
  - Lip swelling [Unknown]
  - Alcohol withdrawal syndrome [Unknown]
  - Bronchitis [Unknown]
  - Candida infection [Unknown]
  - Constipation [Unknown]
  - Pain [Unknown]
  - Pneumonia [Unknown]
  - Parenteral nutrition [Unknown]

NARRATIVE: CASE EVENT DATE: 20040112
